FAERS Safety Report 4985229-6 (Version None)
Quarter: 2006Q2

REPORT INFORMATION
  Report Type: 
  Country: None (occurrence: None)
  Receive Date: 20060427
  Receipt Date: 20050315
  Transmission Date: 20061013
  Serious: Yes (Hospitalization)
  Sender: FDA-Public Use
  Company Number: US-MERCK-0503USA03185

PATIENT
  Age: 74 Year
  Sex: Male
  Weight: 84 kg

DRUGS (9)
  1. VIOXX [Suspect]
     Indication: ARTHRITIS
     Route: 048
     Dates: start: 19991101, end: 20040928
  2. VIOXX [Suspect]
     Route: 048
     Dates: start: 20021001
  3. VIOXX [Suspect]
     Route: 048
     Dates: start: 20031201
  4. VIOXX [Suspect]
     Route: 048
     Dates: start: 20040501
  5. VIOXX [Suspect]
     Route: 048
     Dates: start: 20040201
  6. STARLIX [Concomitant]
     Route: 048
  7. PRECOSE [Concomitant]
     Route: 048
  8. GLIPIZIDE [Concomitant]
     Route: 048
  9. [THERAPY UNSPECIFIED] [Concomitant]
     Route: 048

REACTIONS (11)
  - CARDIAC FAILURE [None]
  - CEREBROVASCULAR ACCIDENT [None]
  - CHEST PAIN [None]
  - GASTRIC DISORDER [None]
  - HEPATOCELLULAR DAMAGE [None]
  - INJURY [None]
  - MYOCARDIAL INFARCTION [None]
  - RENAL DISORDER [None]
  - THROMBOSIS [None]
  - TRANSIENT ISCHAEMIC ATTACK [None]
  - ULCER [None]
